FAERS Safety Report 5189928-5 (Version None)
Quarter: 2006Q4

REPORT INFORMATION
  Report Type: 
  Country: None (occurrence: None)
  Receive Date: 20061218
  Receipt Date: 20061204
  Transmission Date: 20070319
  Serious: Yes (Other)
  Sender: FDA-Public Use
  Company Number: GXKR2006GB07894

PATIENT
  Age: 85 Year
  Sex: Female

DRUGS (6)
  1. AMOXICILLIN [Suspect]
     Indication: LOWER RESPIRATORY TRACT INFECTION
     Dosage: 250 MG, ORAL
     Route: 048
     Dates: start: 20060901, end: 20060905
  2. AMLODIPINE [Concomitant]
  3. ASPIRIN [Concomitant]
  4. CO-AMOXICLAV (AMOXICILLIN, CLAVULANATE POTASSIUM) [Concomitant]
  5. RAMIPRIL [Concomitant]
  6. SOTALOL HYDROCHLORIDE [Concomitant]

REACTIONS (1)
  - ANGIONEUROTIC OEDEMA [None]
